FAERS Safety Report 23567091 (Version 1)
Quarter: 2024Q1

REPORT INFORMATION
  Report Type: Report from Study
  Country: CA (occurrence: CA)
  Receive Date: 20240226
  Receipt Date: 20240226
  Transmission Date: 20240410
  Serious: Yes (Life-Threatening)
  Sender: FDA-Public Use
  Company Number: CA-Eisai Medical Research-EC-2023-149267

PATIENT
  Age: 26 Year
  Sex: Male

DRUGS (6)
  1. LENVATINIB [Suspect]
     Active Substance: LENVATINIB
     Indication: Non-renal cell carcinoma of kidney
     Dosage: DOSE AND FREQUENCY UNKNOWN
     Route: 048
  2. PEMBROLIZUMAB [Suspect]
     Active Substance: PEMBROLIZUMAB
     Indication: Non-renal cell carcinoma of kidney
     Dosage: DOSE AND FREQUENCY UNKNOWN
  3. CARBOPLATIN [Suspect]
     Active Substance: CARBOPLATIN
     Indication: Non-renal cell carcinoma of kidney
     Dosage: DOSE AND FREQUENCY UNKNOWN
     Route: 042
  4. DOXORUBICIN [Suspect]
     Active Substance: DOXORUBICIN
     Indication: Non-renal cell carcinoma of kidney
     Dosage: DOSE AND FREQUENCY UNKNOWN
  5. GEMCITABINE [Suspect]
     Active Substance: GEMCITABINE
     Indication: Non-renal cell carcinoma of kidney
     Dosage: DOSE AND FREQUENCY UNKNOWN
  6. PACLITAXEL [Suspect]
     Active Substance: PACLITAXEL
     Indication: Non-renal cell carcinoma of kidney
     Dosage: DOSE AND FREQUENCY UNKNOWN
     Route: 042

REACTIONS (1)
  - Malignant neoplasm progression [Unknown]
